FAERS Safety Report 18401845 (Version 1)
Quarter: 2020Q4

REPORT INFORMATION
  Report Type: Spontaneous
  Country: IT (occurrence: IT)
  Receive Date: 20201019
  Receipt Date: 20201019
  Transmission Date: 20210114
  Serious: Yes (Hospitalization)
  Sender: FDA-Public Use
  Company Number: US-ZOGENIX INTERNATIONAL LIMITED, A WHOLLY OWNED SUBSIDIARY OF ZOGENIX, INC.-2020ZX000052

PATIENT

DRUGS (1)
  1. FINTEPLA [Suspect]
     Active Substance: FENFLURAMINE
     Indication: SEVERE MYOCLONIC EPILEPSY OF INFANCY
     Dosage: 0.2 TO 0.7 MG/KG/D (TWICE DAILY) UNTIL TOLERATED OR A MAXIMUM DOSE OF 26 MG/D (17 MG/D IF IN COADMIN
     Route: 048

REACTIONS (1)
  - Status epilepticus [Unknown]
